FAERS Safety Report 6145138-6 (Version None)
Quarter: 2009Q2

REPORT INFORMATION
  Report Type: 
  Country: None (occurrence: None)
  Receive Date: 20090402
  Receipt Date: 20090116
  Transmission Date: 20091009
  Serious: No
  Sender: FDA-Public Use
  Company Number: 1000004190

PATIENT
  Age: 22 Year
  Sex: Male

DRUGS (1)
  1. BYSTOLIC [Suspect]
     Indication: PALPITATIONS
     Dosage: 2.5 MG (2.5 MG, 1 IN 1 D), ORAL
     Route: 048
     Dates: start: 20080101

REACTIONS (1)
  - COUGH [None]
